FAERS Safety Report 11087324 (Version 1)
Quarter: 2015Q2

REPORT INFORMATION
  Report Type: Spontaneous
  Country: US (occurrence: US)
  Receive Date: 20150504
  Receipt Date: 20150504
  Transmission Date: 20150821
  Serious: No
  Sender: FDA-Public Use
  Company Number: US-BIOGENIDEC-2015BI057244

PATIENT
  Age: 77 Year
  Sex: Female

DRUGS (9)
  1. PROVIGIL [Concomitant]
     Active Substance: MODAFINIL
  2. CALCIUM PLUS VITAMIN D [Concomitant]
     Active Substance: CALCIUM\VITAMIN D
  3. VITAMIN E [Concomitant]
     Active Substance: .ALPHA.-TOCOPHEROL
  4. TECFIDERA [Suspect]
     Active Substance: DIMETHYL FUMARATE
     Indication: MULTIPLE SCLEROSIS
     Route: 048
  5. CELEXA [Concomitant]
     Active Substance: CITALOPRAM HYDROBROMIDE
  6. LEVOTHYROXINC SODIUM [Concomitant]
  7. SIMVASTATIN. [Concomitant]
     Active Substance: SIMVASTATIN
  8. FLAXSEED [Concomitant]
     Active Substance: FLAX SEED
  9. GLUCOSAMINE CHONDROITIN JOINT [Concomitant]

REACTIONS (1)
  - Decreased immune responsiveness [Unknown]
